FAERS Safety Report 12955979 (Version 1)
Quarter: 2016Q4

REPORT INFORMATION
  Report Type: Spontaneous
  Country: US (occurrence: US)
  Receive Date: 20161118
  Receipt Date: 20161118
  Transmission Date: 20170207
  Serious: No
  Sender: FDA-Public Use
  Company Number: PHEH2016US029716

PATIENT
  Age: 10 Year
  Sex: Male

DRUGS (4)
  1. DAYTRANA [Suspect]
     Active Substance: METHYLPHENIDATE
     Indication: ATTENTION DEFICIT/HYPERACTIVITY DISORDER
     Dosage: 30 MG, UNK
     Route: 062
  2. DAYTRANA [Suspect]
     Active Substance: METHYLPHENIDATE
     Dosage: 15 MG, BID (IN MORNING)
     Route: 062
  3. FOCALIN [Suspect]
     Active Substance: DEXMETHYLPHENIDATE HYDROCHLORIDE
     Indication: ATTENTION DEFICIT/HYPERACTIVITY DISORDER
     Route: 065
  4. DAYTRANA [Suspect]
     Active Substance: METHYLPHENIDATE
     Dosage: UNK
     Route: 062

REACTIONS (4)
  - Drug prescribing error [Not Recovered/Not Resolved]
  - Drug ineffective [Recovered/Resolved]
  - Product availability issue [Unknown]
  - Anger [Recovered/Resolved]

NARRATIVE: CASE EVENT DATE: 201608
